FAERS Safety Report 24943994 (Version 1)
Quarter: 2025Q1

REPORT INFORMATION
  Report Type: Spontaneous
  Country: US (occurrence: US)
  Receive Date: 20250207
  Receipt Date: 20250207
  Transmission Date: 20250409
  Serious: Yes (Other)
  Sender: ELI LILLY AND COMPANY
  Company Number: US-ELI_LILLY_AND_COMPANY-US202501021972

PATIENT
  Age: 53 Year

DRUGS (3)
  1. TRULICITY [Suspect]
     Active Substance: DULAGLUTIDE
     Indication: Product used for unknown indication
     Route: 065
     Dates: start: 202202, end: 202205
  2. OZEMPIC [Suspect]
     Active Substance: SEMAGLUTIDE
     Indication: Product used for unknown indication
     Route: 065
     Dates: start: 202102, end: 202201
  3. VICTOZA [Suspect]
     Active Substance: LIRAGLUTIDE
     Indication: Product used for unknown indication
     Route: 065
     Dates: start: 202205, end: 202212

REACTIONS (3)
  - Intestinal obstruction [Unknown]
  - Impaired gastric emptying [Unknown]
  - Cholelithiasis [Unknown]
